FAERS Safety Report 4967906-6 (Version None)
Quarter: 2006Q2

REPORT INFORMATION
  Report Type: 
  Country: None (occurrence: None)
  Receive Date: 20060410
  Receipt Date: 20060105
  Transmission Date: 20061013
  Serious: Yes (Hospitalization)
  Sender: FDA-Public Use
  Company Number: US-MERCK-0601USA00615

PATIENT
  Age: 88 Year
  Sex: Female
  Weight: 75 kg

DRUGS (7)
  1. VIOXX [Suspect]
     Indication: PAIN
     Route: 048
     Dates: start: 20030925, end: 20040901
  2. LASIX [Concomitant]
     Route: 065
  3. ANEMAGEN [Concomitant]
     Route: 065
  4. PLENDIL [Concomitant]
     Route: 065
  5. MECLIZINE [Concomitant]
     Route: 065
  6. ASPIRIN [Concomitant]
     Route: 065
  7. PROCRIT [Concomitant]
     Route: 065

REACTIONS (10)
  - ANXIETY [None]
  - BRONCHITIS [None]
  - CARDIAC HYPERTROPHY [None]
  - CAROTID ARTERY ATHEROMA [None]
  - CEREBROVASCULAR ACCIDENT [None]
  - DEEP VEIN THROMBOSIS [None]
  - EMOTIONAL DISTRESS [None]
  - PULMONARY EMBOLISM [None]
  - RENAL FAILURE [None]
  - TRANSIENT ISCHAEMIC ATTACK [None]
